FAERS Safety Report 7264081-2 (Version None)
Quarter: 2011Q1

REPORT INFORMATION
  Report Type: 
  Country: None (occurrence: None)
  Receive Date: 20110130
  Receipt Date: 20101230
  Transmission Date: 20110831
  Serious: No
  Sender: FDA-Public Use
  Company Number: US-ABBOTT-11P-163-0694648-00

PATIENT
  Age: 62 Year
  Sex: Female

DRUGS (6)
  1. LORTAB [Concomitant]
     Indication: PAIN
  2. ALTACE [Concomitant]
     Indication: PRODUCT USED FOR UNKNOWN INDICATION
  3. CELEBREX [Concomitant]
     Indication: PAIN
  4. ZOCOR [Concomitant]
     Indication: BLOOD CHOLESTEROL INCREASED
  5. PROAIR HFA [Concomitant]
     Indication: ASTHMA
  6. HUMIRA [Suspect]
     Indication: PSORIASIS
     Dates: start: 20061201, end: 20100801

REACTIONS (2)
  - PRURITUS [None]
  - SKIN ODOUR ABNORMAL [None]
